FAERS Safety Report 7900758-0 (Version None)
Quarter: 2011Q4

REPORT INFORMATION
  Report Type: 
  Country: None (occurrence: None)
  Receive Date: 20111104
  Receipt Date: 20111024
  Transmission Date: 20120403
  Serious: Yes (Other)
  Sender: FDA-Public Use
  Company Number: TPA2011A07045

PATIENT
  Age: 9 Decade
  Sex: Male

DRUGS (1)
  1. ACTOS [Suspect]
     Dosage: 15 MG, 1 IN 1 D, PER ORAL
     Route: 048
     Dates: start: 20030728, end: 20110601

REACTIONS (1)
  - BLADDER TRANSITIONAL CELL CARCINOMA [None]
